FAERS Safety Report 5617260-1 (Version None)
Quarter: 2008Q1

REPORT INFORMATION
  Report Type: 
  Country: None (occurrence: None)
  Receive Date: 20080207
  Receipt Date: 20070917
  Transmission Date: 20080703
  Serious: No
  Sender: FDA-Public Use
  Company Number: A0654239A

PATIENT
  Age: 64 Year
  Sex: Female

DRUGS (4)
  1. PAROXETINE [Suspect]
     Indication: DEPRESSION
     Dosage: 10MG PER DAY
     Route: 048
     Dates: start: 20040101, end: 20051201
  2. PAXIL CR [Suspect]
     Route: 048
     Dates: start: 20051201, end: 20061201
  3. SINGULAIR [Concomitant]
  4. HORMONE REPLACEMENT THERAPY [Concomitant]

REACTIONS (7)
  - CONSTIPATION [None]
  - DRY MOUTH [None]
  - HEADACHE [None]
  - INCREASED APPETITE [None]
  - NAUSEA [None]
  - NIGHT SWEATS [None]
  - WEIGHT INCREASED [None]
